FAERS Safety Report 26025389 (Version 1)
Quarter: 2025Q4

REPORT INFORMATION
  Report Type: Spontaneous
  Country: EU (occurrence: EU)
  Receive Date: 20251111
  Receipt Date: 20251111
  Transmission Date: 20260118
  Serious: Yes (Life-Threatening, Hospitalization, Other)
  Sender: ALEXION PHARMACEUTICALS
  Company Number: EU-AstraZeneca-CH-00943903A

PATIENT
  Age: 64 Year
  Sex: Female
  Weight: 54 kg

DRUGS (4)
  1. XIGDUO XR [Suspect]
     Active Substance: DAPAGLIFLOZIN PROPANEDIOL\METFORMIN HYDROCHLORIDE
     Indication: Type 2 diabetes mellitus
     Dosage: UNK
  2. ESCITALOPRAM [Concomitant]
     Active Substance: ESCITALOPRAM OXALATE
  3. LERCANIDIPINE [Concomitant]
     Active Substance: LERCANIDIPINE
  4. RAMIPRIL [Concomitant]
     Active Substance: RAMIPRIL

REACTIONS (9)
  - Ketoacidosis [Recovered/Resolved]
  - Weight decreased [Unknown]
  - Asthenia [Unknown]
  - Upper limb fracture [Unknown]
  - Blood insulin decreased [Unknown]
  - Urinary tract infection [Unknown]
  - Vomiting [Unknown]
  - Personality change [Unknown]
  - Diabetic ketoacidosis [Unknown]

NARRATIVE: CASE EVENT DATE: 20250101
